FAERS Safety Report 7279590-X (Version None)
Quarter: 2011Q1

REPORT INFORMATION
  Report Type: 
  Country: None (occurrence: None)
  Receive Date: 20110203
  Receipt Date: 20110203
  Transmission Date: 20110831
  Serious: Yes (Other)
  Sender: FDA-Public Use
  Company Number: None

PATIENT
  Age: 58 Year
  Sex: Male

DRUGS (1)
  1. TYSABRI [Suspect]
     Indication: MULTIPLE SCLEROSIS
     Dosage: 300 MG EVERY 4 WKS IV
     Route: 042
     Dates: start: 20110117

REACTIONS (7)
  - IMPAIRED WORK ABILITY [None]
  - MENTAL IMPAIRMENT [None]
  - BURNING SENSATION [None]
  - MIGRAINE [None]
  - MUSCLE SPASMS [None]
  - SPEECH DISORDER [None]
  - NERVOUS SYSTEM DISORDER [None]
